FAERS Safety Report 4386293-8 (Version None)
Quarter: 2004Q2

REPORT INFORMATION
  Report Type: 
  Country: None (occurrence: None)
  Receive Date: 20040623
  Receipt Date: 20040617
  Transmission Date: 20050107
  Serious: Yes (Other)
  Sender: FDA-Public Use
  Company Number: 2004219496US

PATIENT
  Age: 73 Year
  Sex: Female

DRUGS (1)
  1. CELEBREX [Suspect]
     Indication: ARTHRITIS
     Dosage: 200 MG, QD
     Dates: end: 20040616

REACTIONS (3)
  - GASTRIC DISORDER [None]
  - INFLAMMATION [None]
  - LIVER DISORDER [None]
